FAERS Safety Report 8041096-8 (Version None)
Quarter: 2012Q1

REPORT INFORMATION
  Report Type: 
  Country: None (occurrence: None)
  Receive Date: 20120109
  Receipt Date: 20120103
  Transmission Date: 20120608
  Serious: Yes (Hospitalization)
  Sender: FDA-Public Use
  Company Number: CA-2011-1151

PATIENT
  Age: 60 Year
  Sex: Female

DRUGS (3)
  1. CETUXIMAB [Suspect]
     Indication: NON-SMALL CELL LUNG CANCER
     Dosage: 792 MG UNK IV
     Route: 042
     Dates: start: 20110317
  2. CISPLATIN [Suspect]
     Indication: NON-SMALL CELL LUNG CANCER
     Dosage: 158 MG UNK IV
     Route: 042
     Dates: start: 20110316
  3. NAVELBINE [Suspect]
     Indication: NON-SMALL CELL LUNG CANCER
     Dosage: 50 MG IV
     Route: 042
     Dates: start: 20110316, end: 20110323

REACTIONS (12)
  - HYPERGLYCAEMIA [None]
  - CAROTID ARTERY STENOSIS [None]
  - NAUSEA [None]
  - HYPOALBUMINAEMIA [None]
  - HYPOKALAEMIA [None]
  - ABDOMINAL PAIN [None]
  - CEREBRAL INFARCTION [None]
  - DYSPNOEA [None]
  - CONFUSIONAL STATE [None]
  - NEUTROPENIA [None]
  - DIARRHOEA [None]
  - HYPOMAGNESAEMIA [None]
